FAERS Safety Report 9168611 (Version 2)
Quarter: 2013Q1

REPORT INFORMATION
  Report Type: Spontaneous
  Country: CH (occurrence: CH)
  Receive Date: 20130318
  Receipt Date: 20130329
  Transmission Date: 20140127
  Serious: Yes (Other)
  Sender: FDA-Public Use
  Company Number: CH-PFIZER INC-2013089694

PATIENT
  Age: 60 Year
  Sex: Male

DRUGS (2)
  1. LYRICA [Suspect]
     Indication: NEURALGIA
     Dosage: UNK
  2. LYRICA [Suspect]
     Indication: POLYNEUROPATHY

REACTIONS (5)
  - Mental impairment [Unknown]
  - Fatigue [Unknown]
  - Abnormal dreams [Unknown]
  - Dizziness [Unknown]
  - Personality change [Unknown]
